FAERS Safety Report 6652927-8 (Version None)
Quarter: 2010Q1

REPORT INFORMATION
  Report Type: 
  Country: None (occurrence: None)
  Receive Date: 20100326
  Receipt Date: 20100323
  Transmission Date: 20100710
  Serious: Yes (Death)
  Sender: FDA-Public Use
  Company Number: US-NOVOPROD-306076

PATIENT
  Sex: Male
  Weight: 58.96 kg

DRUGS (2)
  1. NOVOLOG [Suspect]
     Indication: DIABETES MELLITUS
     Dosage: 5 IU, TID
     Dates: end: 20091001
  2. LANTUS [Suspect]
     Indication: DIABETES MELLITUS
     Dosage: 20 IU, QD
     Route: 058
     Dates: start: 20091010, end: 20091022

REACTIONS (2)
  - DEATH [None]
  - WEIGHT INCREASED [None]
